FAERS Safety Report 6894211-3 (Version None)
Quarter: 2010Q3

REPORT INFORMATION
  Report Type: 
  Country: None (occurrence: None)
  Receive Date: 20100728
  Receipt Date: 20100714
  Transmission Date: 20110219
  Serious: Yes (Hospitalization)
  Sender: FDA-Public Use
  Company Number: 2010AP001453

PATIENT
  Age: 72 Year
  Sex: Female

DRUGS (9)
  1. CLARITHROMYCIN [Suspect]
     Indication: INFECTION
     Dosage: 500 MG;BID; PO
     Route: 048
     Dates: start: 20100603, end: 20100608
  2. CHLORPHENIRAMINE MALEATE [Concomitant]
  3. CITALOPRAM HYDROBROMIDE [Concomitant]
  4. DILTIAZEM [Concomitant]
  5. LACTULOSE [Concomitant]
  6. LANSOPRAZOLE [Concomitant]
  7. ACETAMINOPHEN [Concomitant]
  8. CEPHALEXIN [Concomitant]
  9. PENICILLIN NOS (PENICILLIN NOS) [Concomitant]

REACTIONS (3)
  - AGITATION [None]
  - CONFUSIONAL STATE [None]
  - GRAND MAL CONVULSION [None]
